FAERS Safety Report 12854483 (Version 1)
Quarter: 2016Q4

REPORT INFORMATION
  Report Type: Spontaneous
  Country: TW (occurrence: TW)
  Receive Date: 20161017
  Receipt Date: 20161017
  Transmission Date: 20170207
  Serious: Yes (Other)
  Sender: FDA-Public Use
  Company Number: TW-BAXTER-2016BAX049942

PATIENT
  Age: 34 Year
  Weight: 49 kg

DRUGS (1)
  1. TISSEEL [Suspect]
     Active Substance: FIBRINOGEN HUMAN\THROMBIN HUMAN
     Indication: PRODUCT USED FOR UNKNOWN INDICATION
     Route: 065
     Dates: start: 20160923

REACTIONS (4)
  - Pneumothorax [Unknown]
  - Subcutaneous emphysema [Recovering/Resolving]
  - Skin haemorrhage [Unknown]
  - Drug administration error [Unknown]
